FAERS Safety Report 11239375 (Version 1)
Quarter: 2015Q3

REPORT INFORMATION
  Report Type: Spontaneous
  Country: DE (occurrence: DE)
  Receive Date: 20150706
  Receipt Date: 20150706
  Transmission Date: 20151125
  Serious: Yes (Death)
  Sender: FDA-Public Use
  Company Number: DE-CIPLA LTD.-2015DE05226

PATIENT

DRUGS (5)
  1. CARBOPLATIN. [Suspect]
     Active Substance: CARBOPLATIN
     Indication: RETINOBLASTOMA
     Dosage: 1200 MG/M2, EVERY 21 DAYS
     Route: 042
  2. VINCRISTINE [Suspect]
     Active Substance: VINCRISTINE
     Indication: RETINOBLASTOMA
     Dosage: 9 MG/M2, EVERY 21 DAYS
     Route: 042
  3. ETOSID [Suspect]
     Active Substance: ETOPOSIDE
     Indication: RETINOBLASTOMA
     Dosage: 1800 MG/M2, EVERY 21 DAYS
     Route: 042
  4. MESNA. [Suspect]
     Active Substance: MESNA
     Indication: PROPHYLAXIS
     Dosage: 100% OF THE CYCLOPHOSPHAMIDE DOSE DIVIDED INTO THREE DOSES GIVEN 0, 4 AND 8 H AFTER CYCLOPHOSPHAMIDE
     Route: 065
  5. CYCLOPHOSPHAMIDE. [Suspect]
     Active Substance: CYCLOPHOSPHAMIDE
     Indication: RETINOBLASTOMA
     Dosage: 4800 MG/M2, EVERY 21 DAYS
     Route: 042

REACTIONS (1)
  - Metastases to central nervous system [Fatal]
